FAERS Safety Report 6385613-2 (Version None)
Quarter: 2009Q4

REPORT INFORMATION
  Report Type: 
  Country: None (occurrence: None)
  Receive Date: 20091002
  Receipt Date: 20081013
  Transmission Date: 20100525
  Serious: No
  Sender: FDA-Public Use
  Company Number: US-ASTRAZENECA-2008UW22551

PATIENT
  Age: 83 Year
  Sex: Female

DRUGS (6)
  1. ARIMIDEX [Suspect]
     Dosage: 1 MG
     Route: 048
     Dates: start: 20080901
  2. LISINOPRIL [Concomitant]
     Dosage: 10 MG
     Route: 048
  3. HYDROCHLOROTHIAZIDE [Concomitant]
     Dosage: 25 MG
     Route: 048
  4. LASIX [Concomitant]
     Route: 048
  5. CALTRATE [Concomitant]
     Route: 048
  6. POTASSIUM CHLORIDE [Concomitant]
     Dosage: 20 MG
     Route: 048

REACTIONS (2)
  - INFLAMMATION [None]
  - OEDEMA PERIPHERAL [None]
